FAERS Safety Report 9255372 (Version 1)
Quarter: 2013Q2

REPORT INFORMATION
  Report Type: Spontaneous
  Country: US (occurrence: None)
  Receive Date: 20130418
  Receipt Date: 20130418
  Transmission Date: 20140414
  Serious: Yes (Other)
  Sender: FDA-Public Use
  Company Number: KAD201304-000456

PATIENT
  Age: 13 Year
  Sex: Male

DRUGS (8)
  1. RIBAVIRIN (RIBAVIRIN) [Suspect]
     Indication: SUBACUTE SCLEROSING PANENCEPHALITIS
  2. INOSINE [Suspect]
     Indication: SUBACUTE SCLEROSING PANENCEPHALITIS
  3. INTERFERON ALFA [Suspect]
     Indication: SUBACUTE SCLEROSING PANENCEPHALITIS
     Dosage: 1 MILLION UNITS
  4. LEVETIRACETAM (LEVETIRACETAM) [Suspect]
     Indication: SUBACUTE SCLEROSING PANENCEPHALITIS
  5. CLONAZEPAM (CLONAZEPAM) (CLONAZEPAM) [Suspect]
     Indication: SUBACUTE SCLEROSING PANENCEPHALITIS
  6. ZONISAMIDE [Suspect]
     Indication: SUBACUTE SCLEROSING PANENCEPHALITIS
  7. VALPROIC ACID (VALPROIC ACID) [Suspect]
     Indication: SUBACUTE SCLEROSING PANENCEPHALITIS
  8. CARBAMAZEPINE (CARBAMAZEPINE) [Suspect]
     Indication: SUBACUTE SCLEROSING PANENCEPHALITIS

REACTIONS (9)
  - Myoclonus [None]
  - Fall [None]
  - Urinary incontinence [None]
  - Memory impairment [None]
  - Performance status decreased [None]
  - Aggression [None]
  - Retinopathy [None]
  - Epilepsy [None]
  - Apraxia [None]
